FAERS Safety Report 5833264-8 (Version None)
Quarter: 2008Q3

REPORT INFORMATION
  Report Type: 
  Country: None (occurrence: None)
  Receive Date: 20080805
  Receipt Date: 20080730
  Transmission Date: 20090109
  Serious: No
  Sender: FDA-Public Use
  Company Number: US-BAYER-200829099NA

PATIENT
  Sex: Male

DRUGS (1)
  1. AVELOX [Suspect]
     Indication: INFLUENZA
     Dosage: UNIT DOSE: 400 MG
     Route: 048
     Dates: start: 20080601

REACTIONS (1)
  - TENDONITIS [None]
